FAERS Safety Report 23259208 (Version 1)
Quarter: 2023Q4

REPORT INFORMATION
  Report Type: Report from Study
  Country: CA (occurrence: CA)
  Receive Date: 20231204
  Receipt Date: 20231204
  Transmission Date: 20240109
  Serious: Yes (Other)
  Sender: FDA-Public Use
  Company Number: CA-BAUSCH-BL-2022-021620

PATIENT
  Sex: Female

DRUGS (12)
  1. CONTRAVE [Suspect]
     Active Substance: BUPROPION HYDROCHLORIDE\NALTREXONE HYDROCHLORIDE
     Indication: Weight control
     Dosage: 90/8 MG, 1 TABLET IN MORNING
     Route: 048
     Dates: start: 20220711, end: 20220717
  2. CONTRAVE [Suspect]
     Active Substance: BUPROPION HYDROCHLORIDE\NALTREXONE HYDROCHLORIDE
     Dosage: 90/8 MG, 1 TABLET IN MORNING, 1 TABLET IN EVENING
     Route: 048
     Dates: start: 20220718, end: 20220724
  3. CONTRAVE [Suspect]
     Active Substance: BUPROPION HYDROCHLORIDE\NALTREXONE HYDROCHLORIDE
     Dosage: 90/8 MG, 2 TABLET IN MORNING, 1 TABLET IN EVENING (1 IN 12 HR)
     Route: 048
     Dates: start: 20220725, end: 20220830
  4. CONTRAVE [Suspect]
     Active Substance: BUPROPION HYDROCHLORIDE\NALTREXONE HYDROCHLORIDE
     Dosage: 90/8 MG, 2 TABLET IN MORNING, 2 TABLET IN EVENING
     Route: 048
     Dates: start: 20220831, end: 20221107
  5. CONTRAVE [Suspect]
     Active Substance: BUPROPION HYDROCHLORIDE\NALTREXONE HYDROCHLORIDE
     Dosage: 90/8 MG, 1 TABLET Q AM (SECOND ATTEMPT)
     Route: 048
     Dates: start: 20221114
  6. CONTRAVE [Suspect]
     Active Substance: BUPROPION HYDROCHLORIDE\NALTREXONE HYDROCHLORIDE
     Dosage: 90/8 MG, 1 TABLET Q AM (THIRD ATTEMPT)
     Route: 048
     Dates: start: 20230411
  7. CONTRAVE [Suspect]
     Active Substance: BUPROPION HYDROCHLORIDE\NALTREXONE HYDROCHLORIDE
     Dosage: 90/8 MG, 4 TABLETS/DAY WAS IN APPROXIMATELY SIXTH MONTH (THIRD ATTEMPT) (2 DOSAGE FORMS,1 IN 12 HR)
     Route: 048
     Dates: start: 20230502, end: 202309
  8. CONTRAVE [Suspect]
     Active Substance: BUPROPION HYDROCHLORIDE\NALTREXONE HYDROCHLORIDE
     Dosage: 90/8 MG, 1 TABLET OD
     Route: 048
     Dates: start: 20231106, end: 20231112
  9. CONTRAVE [Suspect]
     Active Substance: BUPROPION HYDROCHLORIDE\NALTREXONE HYDROCHLORIDE
     Dosage: 90/8 MG, 1 TABLET QAM 1 TABLET QPM
     Route: 048
     Dates: start: 20231113, end: 20231119
  10. CONTRAVE [Suspect]
     Active Substance: BUPROPION HYDROCHLORIDE\NALTREXONE HYDROCHLORIDE
     Dosage: 90/8 MG, 2 TABLETS QAM, 1 TABLET QPM (1 IN 12 HR)
     Route: 048
     Dates: start: 20231120
  11. SAXENDA [Concomitant]
     Active Substance: LIRAGLUTIDE
     Indication: Weight control
     Dosage: UNK
     Dates: start: 202309
  12. ALCOHOL [Concomitant]
     Active Substance: ALCOHOL
     Indication: Product used for unknown indication
     Dosage: UNK

REACTIONS (17)
  - Pneumonitis [Recovered/Resolved]
  - Food craving [Not Recovered/Not Resolved]
  - Hunger [Unknown]
  - Sleep disorder [Not Recovered/Not Resolved]
  - Weight increased [Recovered/Resolved]
  - Dry skin [Not Recovered/Not Resolved]
  - Flatulence [Not Recovered/Not Resolved]
  - Abdominal discomfort [Not Recovered/Not Resolved]
  - Depressed mood [Not Recovered/Not Resolved]
  - Stress [Not Recovered/Not Resolved]
  - Constipation [Not Recovered/Not Resolved]
  - Asthenia [Not Recovered/Not Resolved]
  - Therapy interrupted [Unknown]
  - Drug titration error [Unknown]
  - Product use issue [Unknown]
  - Intentional dose omission [Unknown]
  - Product dose omission in error [Unknown]

NARRATIVE: CASE EVENT DATE: 20220101
